FAERS Safety Report 7062672-5 (Version None)
Quarter: 2010Q4

REPORT INFORMATION
  Report Type: 
  Country: None (occurrence: None)
  Receive Date: 20101026
  Receipt Date: 20091204
  Transmission Date: 20110411
  Serious: No
  Sender: FDA-Public Use
  Company Number: US-PFIZER INC-2009307663

PATIENT
  Sex: Male
  Weight: 90.7 kg

DRUGS (3)
  1. LIPITOR [Suspect]
     Dosage: 10 MG, 1X/DAY DAILY DOSE: 10 MG
     Route: 048
     Dates: start: 20090901
  2. METFORMIN HYDROCHLORIDE [Concomitant]
     Indication: TYPE 2 DIABETES MELLITUS
     Dosage: UNK
  3. NEXIUM [Concomitant]
     Indication: GASTROOESOPHAGEAL REFLUX DISEASE
     Dosage: UNK

REACTIONS (1)
  - ALOPECIA [None]
